FAERS Safety Report 4959769-X (Version None)
Quarter: 2006Q1

REPORT INFORMATION
  Report Type: 
  Country: None (occurrence: None)
  Receive Date: 20060324
  Receipt Date: 20060313
  Transmission Date: 20060701
  Serious: Yes (Other)
  Sender: FDA-Public Use
  Company Number: 2006034742

PATIENT
  Age: 41 Year
  Sex: Female

DRUGS (11)
  1. NEURONTIN [Suspect]
     Indication: NEURALGIA
     Dosage: 5400 MG (600 MG, 9 IN 1 D), ORAL
     Route: 048
     Dates: end: 20060101
  2. LYRICA [Suspect]
     Indication: NEURALGIA
     Dosage: 50 MG
     Dates: start: 20060101
  3. AVANDAMET [Suspect]
     Indication: ILL-DEFINED DISORDER
     Dosage: 8 MG (4 MG, 2 IN 1 D)
  4. METHADONE HCL [Suspect]
     Indication: PAIN
  5. NORFLEX (OPHENADRINE CITRATE) [Concomitant]
  6. GLUCOTROL XL [Concomitant]
  7. LORTAB [Concomitant]
  8. FLONASE [Concomitant]
  9. ZYRTEC [Concomitant]
  10. DIAZEPAM [Concomitant]
  11. VITAMINS (VITAMINS) [Concomitant]

REACTIONS (13)
  - ABNORMAL DREAMS [None]
  - BLISTER [None]
  - CATARACT [None]
  - DIZZINESS [None]
  - DRUG INEFFECTIVE [None]
  - DYSKINESIA [None]
  - MIDDLE INSOMNIA [None]
  - MUSCLE TWITCHING [None]
  - MYALGIA [None]
  - NEURALGIA [None]
  - OEDEMA [None]
  - STOMACH DISCOMFORT [None]
  - VISION BLURRED [None]
